FAERS Safety Report 10073378 (Version 1)
Quarter: 2014Q2

REPORT INFORMATION
  Report Type: Spontaneous
  Country: US (occurrence: US)
  Receive Date: 20140411
  Receipt Date: 20140411
  Transmission Date: 20141212
  Serious: No
  Sender: FDA-Public Use
  Company Number: US-009507513-1404USA004707

PATIENT
  Age: 3 Year
  Sex: Male
  Weight: 12.7 kg

DRUGS (1)
  1. CLARITIN CHEWABLE TABLETS [Suspect]
     Indication: HYPERSENSITIVITY
     Dosage: 10 MG, QPM
     Route: 048

REACTIONS (1)
  - Overdose [Unknown]
